FAERS Safety Report 15285168 (Version 1)
Quarter: 2018Q4

REPORT INFORMATION
  Report Type: Spontaneous
  Country: FR (occurrence: FR)
  Receive Date: 20180816
  Receipt Date: 20180816
  Transmission Date: 20190204
  Serious: Yes (Death, Hospitalization)
  Sender: FDA-Public Use
  Company Number: FR-TEVA-2018-FR-941556

PATIENT
  Age: 69 Year
  Sex: Female

DRUGS (2)
  1. MITOMYCIN C KYOWA 10 MG POWDER FOR SOLUTION FOR INJECTION [Suspect]
     Active Substance: MITOMYCIN
     Indication: ANAL CANCER
     Route: 041
     Dates: start: 20180706
  2. FLUOROURACILE TEVA [Suspect]
     Active Substance: FLUOROURACIL
     Indication: ANAL CANCER
     Route: 041
     Dates: start: 20180706, end: 20180710

REACTIONS (2)
  - Angina pectoris [Fatal]
  - Cardiac arrest [Fatal]

NARRATIVE: CASE EVENT DATE: 20180708
